FAERS Safety Report 20844986 (Version 1)
Quarter: 2022Q2

REPORT INFORMATION
  Report Type: Spontaneous
  Country: US (occurrence: None)
  Receive Date: 20220518
  Receipt Date: 20220518
  Transmission Date: 20220720
  Serious: Yes (Other)
  Sender: FDA-Public Use
  Company Number: US-ROCHE-3095852

PATIENT

DRUGS (1)
  1. GAVRETO [Suspect]
     Active Substance: PRALSETINIB
     Indication: Papillary thyroid cancer
     Route: 048

REACTIONS (4)
  - Blood triglycerides increased [Unknown]
  - Hyperphosphataemia [Unknown]
  - Hyperkalaemia [Unknown]
  - Off label use [Unknown]
